FAERS Safety Report 7682684-8 (Version None)
Quarter: 2011Q3

REPORT INFORMATION
  Report Type: 
  Country: None (occurrence: None)
  Receive Date: 20110815
  Receipt Date: 20110808
  Transmission Date: 20111222
  Serious: Yes (Other)
  Sender: FDA-Public Use
  Company Number: US-CEPHALON-US021837

PATIENT
  Sex: Male

DRUGS (12)
  1. SEROQUEL [Concomitant]
     Indication: GENERALISED ANXIETY DISORDER
     Route: 048
  2. LEVOTHROID [Concomitant]
     Indication: HYPOTHYROIDISM
     Route: 048
  3. TOPROL-XL [Concomitant]
     Indication: HYPERTENSION
     Route: 048
  4. LOTEMAX [Concomitant]
     Indication: GLAUCOMA
     Dosage: LEFT EYE
     Route: 061
  5. COSOPT [Concomitant]
     Indication: GLAUCOMA
     Dosage: LEFT EYE
     Route: 061
  6. VYTORIN [Concomitant]
     Indication: HYPERCHOLESTEROLAEMIA
     Dosage: 10/40
     Route: 048
  7. NOVOLIN N [Concomitant]
     Indication: DIABETES MELLITUS
     Dosage: 5 UNITS PRN IF GLUCOSE IS ABOVE 150
     Route: 058
  8. LEXAPRO [Concomitant]
     Indication: DEPRESSION
     Route: 048
  9. COUMADIN [Concomitant]
     Indication: ATRIAL FIBRILLATION
     Route: 048
  10. PROVIGIL [Suspect]
     Indication: SOMNOLENCE
     Route: 048
     Dates: start: 20060801, end: 20070801
  11. PROVIGIL [Suspect]
     Route: 048
     Dates: start: 20071001, end: 20071127
  12. DUETACT [Concomitant]
     Indication: DIABETES MELLITUS
     Dosage: 30/2
     Route: 048

REACTIONS (1)
  - HYPONATRAEMIA [None]
